FAERS Safety Report 8189272-8 (Version None)
Quarter: 2012Q1

REPORT INFORMATION
  Report Type: 
  Country: None (occurrence: None)
  Receive Date: 20120307
  Receipt Date: 20120228
  Transmission Date: 20120608
  Serious: Yes (Life-Threatening, Hospitalization, Other)
  Sender: FDA-Public Use
  Company Number: US-CELGENEUS-163-21660-12030247

PATIENT
  Age: 54 Year
  Sex: Female
  Weight: 68.055 kg

DRUGS (7)
  1. ABRAXANE [Suspect]
     Dosage: 80 MILLIGRAM/SQ. METER
     Route: 041
     Dates: start: 20111013
  2. CARBOPLATIN [Suspect]
     Indication: BREAST CANCER
     Dosage: 6 DOSAGE FORMS
     Route: 041
     Dates: start: 20110811
  3. DOXORUBICIN HCL [Suspect]
     Indication: BREAST CANCER
     Dosage: 60 MILLIGRAM/SQ. METER
     Route: 041
     Dates: start: 20111110
  4. CYCLOPHOSPHAMIDE [Suspect]
     Indication: BREAST CANCER
     Dosage: 600 MILLIGRAM/SQ. METER
     Route: 041
     Dates: start: 20111110
  5. ABRAXANE [Suspect]
     Indication: BREAST CANCER
     Dosage: 80 MILLIGRAM/SQ. METER
     Route: 041
     Dates: start: 20110811, end: 20111006
  6. NEULASTA [Suspect]
     Indication: CHEMOTHERAPY
     Route: 065
  7. BEVACIZUMAB [Suspect]
     Indication: BREAST CANCER
     Dosage: 10 MILLIGRAM/KILOGRAM
     Route: 065
     Dates: start: 20110811

REACTIONS (4)
  - WHITE BLOOD CELL COUNT DECREASED [None]
  - ANAEMIA [None]
  - FEBRILE NEUTROPENIA [None]
  - PLATELET COUNT DECREASED [None]
